FAERS Safety Report 4651093-8 (Version None)
Quarter: 2005Q2

REPORT INFORMATION
  Report Type: 
  Country: None (occurrence: None)
  Receive Date: 20050503
  Receipt Date: 20050419
  Transmission Date: 20051028
  Serious: Yes (Hospitalization)
  Sender: FDA-Public Use
  Company Number: US-ROCHE-402552

PATIENT
  Age: 72 Year
  Sex: Female
  Weight: 54.9 kg

DRUGS (2)
  1. XELODA [Suspect]
     Dosage: FOR 14 DAYS.
     Route: 048
     Dates: start: 20041110, end: 20050415
  2. COUMADIN [Interacting]
     Dosage: REPORTED AS 2.5MG FOR FIVE DAYS AND 5MG FOR TWO DAYS.
     Route: 048
     Dates: start: 20040715, end: 20050415

REACTIONS (3)
  - DISEASE PROGRESSION [None]
  - DRUG INTERACTION [None]
  - HAEMATURIA [None]
